FAERS Safety Report 26121397 (Version 1)
Quarter: 2025Q4

REPORT INFORMATION
  Report Type: Spontaneous
  Country: US (occurrence: None)
  Receive Date: 20251203
  Receipt Date: 20251203
  Transmission Date: 20260117
  Serious: Yes (Life-Threatening, Hospitalization)
  Sender: FDA-CTU
  Company Number: None

PATIENT
  Age: 84 Year
  Sex: Female
  Weight: 54 kg

DRUGS (4)
  1. ACTEMRA [Suspect]
     Active Substance: TOCILIZUMAB
     Indication: Arteritis
     Dates: start: 20251114, end: 20251128
  2. METHOTREXATE [Concomitant]
     Active Substance: METHOTREXATE
  3. CARDIZEM [Concomitant]
     Active Substance: DILTIAZEM HYDROCHLORIDE
  4. FOLIC ACID [Concomitant]
     Active Substance: FOLIC ACID

REACTIONS (9)
  - Swelling face [None]
  - Swollen tongue [None]
  - Peripheral swelling [None]
  - Hypophagia [None]
  - Infection [None]
  - Candida infection [None]
  - Herpes virus infection [None]
  - Lung disorder [None]
  - Therapy interrupted [None]

NARRATIVE: CASE EVENT DATE: 20251123
